FAERS Safety Report 7239000-5 (Version None)
Quarter: 2011Q1

REPORT INFORMATION
  Report Type: 
  Country: None (occurrence: None)
  Receive Date: 20110121
  Receipt Date: 20110114
  Transmission Date: 20110831
  Serious: Yes (Other)
  Sender: FDA-Public Use
  Company Number: PL-PFIZER INC-2011010813

PATIENT
  Sex: Female

DRUGS (1)
  1. ZETAMAX [Suspect]

REACTIONS (3)
  - ABDOMINAL PAIN [None]
  - VOMITING [None]
  - SHOCK [None]
